FAERS Safety Report 14829723 (Version 2)
Quarter: 2018Q3

REPORT INFORMATION
  Report Type: Spontaneous
  Country: PL (occurrence: PL)
  Receive Date: 20180430
  Receipt Date: 20180702
  Transmission Date: 20181010
  Serious: Yes (Death, Hospitalization, Other)
  Sender: FDA-Public Use
  Company Number: PL-MYLANLABS-2018M1028095

PATIENT
  Age: 57 Year
  Sex: Female

DRUGS (4)
  1. TACROLIMUS. [Suspect]
     Active Substance: TACROLIMUS
     Indication: RENAL TRANSPLANT
     Dosage: UNK
     Route: 065
  2. MYCOPHENOLATE MOFETIL. [Suspect]
     Active Substance: MYCOPHENOLATE MOFETIL
     Indication: IMMUNOSUPPRESSANT DRUG THERAPY
  3. MYCOPHENOLATE MOFETIL. [Suspect]
     Active Substance: MYCOPHENOLATE MOFETIL
     Indication: RENAL TRANSPLANT
     Dosage: UNK
     Route: 065
  4. TACROLIMUS. [Suspect]
     Active Substance: TACROLIMUS
     Indication: IMMUNOSUPPRESSANT DRUG THERAPY
     Dosage: UNK

REACTIONS (15)
  - Haemolysis [Fatal]
  - Pyrexia [Fatal]
  - Cardiac failure chronic [Fatal]
  - Haemolytic anaemia [Fatal]
  - Aortic stenosis [Fatal]
  - Dyspnoea exertional [Fatal]
  - Haemodynamic instability [Fatal]
  - Cardiac aneurysm [Fatal]
  - Cardiac failure [Fatal]
  - Device failure [Unknown]
  - Heart valve incompetence [Fatal]
  - Endocarditis [Fatal]
  - Dyspnoea [Fatal]
  - Tachycardia [Fatal]
  - Cardiac valve disease [Fatal]
